FAERS Safety Report 7019566-0 (Version None)
Quarter: 2010Q3

REPORT INFORMATION
  Report Type: 
  Country: None (occurrence: None)
  Receive Date: 20100928
  Receipt Date: 20100928
  Transmission Date: 20110219
  Serious: No
  Sender: FDA-Public Use
  Company Number: None

PATIENT
  Age: 29 Year
  Sex: Male
  Weight: 77.1115 kg

DRUGS (4)
  1. CEFTRIAXONE SODIUM [Suspect]
     Indication: CELLULITIS
     Dosage: 1 GM W/ STERILE WATER FOR INJ ONCE PER DAY UNK
     Dates: start: 20100916, end: 20100922
  2. CEFTRIAXONE SODIUM [Suspect]
     Indication: CROHN'S DISEASE
     Dosage: 1 GM W/ STERILE WATER FOR INJ ONCE PER DAY UNK
     Dates: start: 20100916, end: 20100922
  3. TPN [Suspect]
     Indication: CELLULITIS
     Dosage: TPN 15 HOUR CYCLE UNK
     Dates: start: 20100916, end: 20100922
  4. TPN [Suspect]
     Indication: CROHN'S DISEASE
     Dosage: TPN 15 HOUR CYCLE UNK
     Dates: start: 20100916, end: 20100922

REACTIONS (2)
  - CHEST PAIN [None]
  - WRONG TECHNIQUE IN DRUG USAGE PROCESS [None]
